FAERS Safety Report 12656894 (Version 1)
Quarter: 2016Q3

REPORT INFORMATION
  Report Type: Spontaneous
  Country: US (occurrence: US)
  Receive Date: 20160816
  Receipt Date: 20160816
  Transmission Date: 20161109
  Serious: No
  Sender: FDA-Public Use
  Company Number: US-PERRIGO-16US015486

PATIENT
  Age: 18 Year
  Sex: Male
  Weight: 65.76 kg

DRUGS (3)
  1. LORATADINE. [Suspect]
     Active Substance: LORATADINE
     Indication: HEADACHE
  2. LORATADINE. [Suspect]
     Active Substance: LORATADINE
     Indication: RHINORRHOEA
     Dosage: 10 MG, TWICE IN 13 HOURS
     Route: 048
     Dates: start: 20160420, end: 20160421
  3. LORATADINE. [Suspect]
     Active Substance: LORATADINE
     Indication: THROAT IRRITATION

REACTIONS (3)
  - Somnolence [Recovered/Resolved]
  - Inappropriate schedule of drug administration [Unknown]
  - Off label use [Unknown]

NARRATIVE: CASE EVENT DATE: 20160420
